FAERS Safety Report 5953960-1 (Version None)
Quarter: 2008Q4

REPORT INFORMATION
  Report Type: 
  Country: None (occurrence: None)
  Receive Date: 20081114
  Receipt Date: 20081104
  Transmission Date: 20090506
  Serious: Yes (Death, Life-Threatening, Other)
  Sender: FDA-Public Use
  Company Number: ZA-PFIZER INC-2008093310

PATIENT
  Sex: Male
  Weight: 74 kg

DRUGS (1)
  1. SUTENT [Suspect]
     Indication: METASTATIC RENAL CELL CARCINOMA
     Route: 048
     Dates: start: 20080915, end: 20081010

REACTIONS (6)
  - ASCITES [None]
  - HAEMATEMESIS [None]
  - OEDEMA [None]
  - PULMONARY HAEMORRHAGE [None]
  - SKIN DISCOLOURATION [None]
  - STOMATITIS [None]
